FAERS Safety Report 9139505 (Version 1)
Quarter: 2013Q1

REPORT INFORMATION
  Report Type: Spontaneous
  Country: US (occurrence: US)
  Receive Date: 20130305
  Receipt Date: 20130305
  Transmission Date: 20140127
  Serious: Yes (Other)
  Sender: FDA-Public Use
  Company Number: US-JNJFOC-20130216454

PATIENT
  Age: 77 Year
  Sex: Male

DRUGS (1)
  1. BENADRYL [Suspect]
     Indication: SLEEP DISORDER THERAPY
     Dosage: 1 PILL, EVERY NIGHT.
     Route: 048
     Dates: start: 1976

REACTIONS (3)
  - Prostatic disorder [Not Recovered/Not Resolved]
  - Dysuria [Not Recovered/Not Resolved]
  - Incontinence [Not Recovered/Not Resolved]
